FAERS Safety Report 7091425-7 (Version None)
Quarter: 2010Q4

REPORT INFORMATION
  Report Type: 
  Country: None (occurrence: None)
  Receive Date: 20101109
  Receipt Date: 20101102
  Transmission Date: 20110411
  Serious: Yes (Hospitalization)
  Sender: FDA-Public Use
  Company Number: JP-ELI_LILLY_AND_COMPANY-JP201003000370

PATIENT
  Sex: Female
  Weight: 56 kg

DRUGS (7)
  1. SOMATROPIN [Suspect]
     Indication: GROWTH HORMONE DEFICIENCY
     Dosage: 0.1 MG, DAILY (1/D)
     Route: 058
     Dates: start: 20080725, end: 20090709
  2. SOMATROPIN [Suspect]
     Dosage: 0.2 MG, DAILY (1/D)
     Route: 058
     Dates: start: 20090710
  3. CORTRIL [Concomitant]
     Indication: SECONDARY ADRENOCORTICAL INSUFFICIENCY
     Dosage: 20 MG, DAILY (1/D)
     Route: 048
  4. THYRADIN S [Concomitant]
     Indication: SECONDARY HYPOTHYROIDISM
     Dosage: 100 UG, DAILY (1/D)
     Route: 048
  5. ONEALFA [Concomitant]
     Indication: OSTEOPOROSIS
     Dosage: 0.5 UG, DAILY (1/D)
     Route: 048
     Dates: start: 20060630
  6. BONALON /01220302/ [Concomitant]
     Indication: OSTEOPOROSIS
     Dosage: 35 MG, WEEKLY (1/W)
     Route: 048
     Dates: start: 20060630
  7. ATELEC [Concomitant]
     Indication: HYPERTENSION
     Dosage: 5 MG, DAILY (1/D)
     Route: 048
     Dates: start: 20090508

REACTIONS (1)
  - SEPSIS [None]
